FAERS Safety Report 7570397-2 (Version None)
Quarter: 2011Q2

REPORT INFORMATION
  Report Type: 
  Country: None (occurrence: None)
  Receive Date: 20110624
  Receipt Date: 20110613
  Transmission Date: 20111010
  Serious: Yes (Hospitalization)
  Sender: FDA-Public Use
  Company Number: GB-JNJFOC-20100105725

PATIENT
  Age: 83 Year
  Sex: Female

DRUGS (16)
  1. METHADONE HCL [Suspect]
     Indication: COUGH
  2. MORPHINE [Suspect]
     Indication: PRODUCT USED FOR UNKNOWN INDICATION
  3. MORPHINE [Suspect]
  4. OXYCODONE HCL [Suspect]
  5. CELECOXIB [Concomitant]
     Route: 065
  6. CORTICOSTEROIDS [Concomitant]
     Route: 065
  7. OXYCODONE HCL [Suspect]
     Indication: PRODUCT USED FOR UNKNOWN INDICATION
  8. PAMIDRONATE DISODIUM [Concomitant]
     Dosage: 1 DF/4/1 TRIMESTER
     Route: 042
  9. ACETAMINOPHEN [Concomitant]
     Route: 065
  10. DEXTROMORAMIDE [Suspect]
     Indication: PRODUCT USED FOR UNKNOWN INDICATION
  11. DEXTROMORAMIDE [Suspect]
  12. FENTANYL [Suspect]
     Indication: PRODUCT USED FOR UNKNOWN INDICATION
  13. FENTANYL [Suspect]
  14. METHADONE HCL [Suspect]
  15. ACETAMINOPHEN AND CODEINE PHOSPHATE [Suspect]
     Indication: PAIN
     Route: 048
  16. TRAMADOL HCL [Suspect]
     Indication: BREAST CANCER METASTATIC

REACTIONS (5)
  - DIZZINESS [None]
  - TYPE I HYPERSENSITIVITY [None]
  - FLUSHING [None]
  - FEELING HOT [None]
  - HYPERHIDROSIS [None]
